FAERS Safety Report 15339349 (Version 1)
Quarter: 2018Q3

REPORT INFORMATION
  Report Type: Spontaneous
  Country: CN (occurrence: CN)
  Receive Date: 20180831
  Receipt Date: 20180831
  Transmission Date: 20181010
  Serious: Yes (Hospitalization)
  Sender: FDA-Public Use
  Company Number: CN-EISAI MEDICAL RESEARCH-EC-2018-044607

PATIENT
  Age: 55 Year
  Sex: Female
  Weight: 68 kg

DRUGS (4)
  1. LIZHUDELE [Concomitant]
     Indication: HELICOBACTER INFECTION
     Route: 048
     Dates: start: 20180409
  2. FURAZOLIDONE [Concomitant]
     Active Substance: FURAZOLIDONE
     Indication: HELICOBACTER INFECTION
     Route: 048
     Dates: start: 20180409, end: 20180418
  3. AMOXICILLIN. [Suspect]
     Active Substance: AMOXICILLIN
     Indication: HELICOBACTER INFECTION
     Route: 048
     Dates: start: 20180409, end: 20180418
  4. PARIET [Suspect]
     Active Substance: RABEPRAZOLE SODIUM
     Indication: HELICOBACTER INFECTION
     Route: 048
     Dates: start: 20180409, end: 20180418

REACTIONS (1)
  - Rash pruritic [Recovering/Resolving]

NARRATIVE: CASE EVENT DATE: 20180418
